FAERS Safety Report 5660643-4 (Version None)
Quarter: 2008Q1

REPORT INFORMATION
  Report Type: 
  Country: None (occurrence: None)
  Receive Date: 20080306
  Receipt Date: 20080229
  Transmission Date: 20080703
  Serious: Yes (Hospitalization)
  Sender: FDA-Public Use
  Company Number: 2008-01626

PATIENT
  Age: 73 Year
  Sex: Male

DRUGS (9)
  1. COLCHICUM JTL LIQ [Suspect]
     Indication: GOUTY ARTHRITIS
     Dosage: 1.5 MG, DAILY X 6 WEEKS, ORAL; 0.5 - 1 MG, DAILY, ORAL
     Route: 048
     Dates: start: 20010101, end: 20010101
  2. COLCHICUM JTL LIQ [Suspect]
     Indication: GOUTY ARTHRITIS
     Dosage: 1.5 MG, DAILY X 6 WEEKS, ORAL; 0.5 - 1 MG, DAILY, ORAL
     Route: 048
  3. DIGOXIN [Concomitant]
  4. ALLOPURINOL [Concomitant]
  5. FUROSEMIDE [Concomitant]
  6. LISINOPRIL [Concomitant]
  7. ISOSORBIDE MONONITRATE [Concomitant]
  8. WARFARIN SODIUM [Concomitant]
  9. METOLAZONE [Concomitant]

REACTIONS (1)
  - RHABDOMYOLYSIS [None]
